FAERS Safety Report 5244845-7 (Version None)
Quarter: 2007Q1

REPORT INFORMATION
  Report Type: 
  Country: None (occurrence: None)
  Receive Date: 20070216
  Receipt Date: 20070201
  Transmission Date: 20070707
  Serious: Yes (Death, Life-Threatening)
  Sender: FDA-Public Use
  Company Number: S06-GER-00409-01

PATIENT
  Age: 63 Year
  Sex: Male
  Weight: 90 kg

DRUGS (3)
  1. CITALOPRAM HYDROBROMIDE [Suspect]
     Indication: DEPRESSION
     Dosage: 20 MG QD; PO
     Route: 048
     Dates: start: 20051217, end: 20060119
  2. FALITEROM ^FAHLBERG^ (PHENPROCOUMON) [Suspect]
     Dates: start: 20051113
  3. FALITHROM ^FAHLBERG^ (PHENPROCOUMON) [Suspect]
     Dates: start: 20051113

REACTIONS (13)
  - ANTIDEPRESSANT DRUG LEVEL BELOW THERAPEUTIC [None]
  - DEPRESSION [None]
  - DIALYSIS [None]
  - LEG AMPUTATION [None]
  - MULTI-ORGAN FAILURE [None]
  - OVERDOSE [None]
  - PLATELET DISORDER [None]
  - PULMONARY HAEMORRHAGE [None]
  - RENAL FAILURE ACUTE [None]
  - RESPIRATORY GAS EXCHANGE DISORDER [None]
  - SEPSIS [None]
  - SHOCK HAEMORRHAGIC [None]
  - UPPER GASTROINTESTINAL HAEMORRHAGE [None]
